FAERS Safety Report 17800481 (Version 1)
Quarter: 2020Q2

REPORT INFORMATION
  Report Type: Spontaneous
  Country: AU (occurrence: AU)
  Receive Date: 20200519
  Receipt Date: 20200519
  Transmission Date: 20200714
  Serious: Yes (Hospitalization, Other)
  Sender: FDA-Public Use
  Company Number: AU-LUPIN PHARMACEUTICALS INC.-2020-02223

PATIENT
  Age: 60 Year
  Sex: Male

DRUGS (3)
  1. GLICLAZIDE [Suspect]
     Active Substance: GLICLAZIDE
     Indication: TYPE 2 DIABETES MELLITUS
     Dosage: UNK (EXCESSIVE DOSE)
     Route: 048
  2. METFORMIN [Suspect]
     Active Substance: METFORMIN HYDROCHLORIDE
     Indication: TYPE 2 DIABETES MELLITUS
     Dosage: 500 MILLIGRAM, BID
     Route: 065
  3. METFORMIN [Suspect]
     Active Substance: METFORMIN HYDROCHLORIDE
     Dosage: 500 MILLIGRAM, TID
     Route: 065

REACTIONS (7)
  - Hypoxic-ischaemic encephalopathy [Unknown]
  - Overdose [Unknown]
  - Acute kidney injury [Unknown]
  - Urinary tract obstruction [Unknown]
  - Hemiplegia [Unknown]
  - Hypoglycaemia [Unknown]
  - Pneumonia aspiration [Unknown]
